APPROVED DRUG PRODUCT: HYDROMORPHONE HYDROCHLORIDE
Active Ingredient: HYDROMORPHONE HYDROCHLORIDE
Strength: 32MG
Dosage Form/Route: TABLET, EXTENDED RELEASE;ORAL
Application: A204278 | Product #004 | TE Code: AB
Applicant: PADAGIS US LLC
Approved: Sep 20, 2017 | RLD: No | RS: No | Type: RX